FAERS Safety Report 20036258 (Version 1)
Quarter: 2021Q4

REPORT INFORMATION
  Report Type: Spontaneous
  Country: FR (occurrence: FR)
  Receive Date: 20211105
  Receipt Date: 20211105
  Transmission Date: 20220303
  Serious: Yes (Other)
  Sender: FDA-Public Use
  Company Number: None

PATIENT
  Age: 66 Year
  Sex: Male
  Weight: 75 kg

DRUGS (3)
  1. DOXAZOSIN MESYLATE [Suspect]
     Active Substance: DOXAZOSIN MESYLATE
     Indication: Prostatomegaly
     Dosage: 4 MILLIGRAM DAILY; 1 TABLET PER DAY
     Route: 048
     Dates: start: 20211007, end: 20211008
  2. ENALAPRIL/LERCANIDIPINE BIOGARAN [Concomitant]
     Dosage: FORMSTRENGTH:20 MG / 10 MG
  3. LIPTRUZET [Concomitant]
     Active Substance: ATORVASTATIN CALCIUM\EZETIMIBE
     Dosage: FORM STRENGTH:10 MG/10 MG

REACTIONS (2)
  - Loss of consciousness [Recovered/Resolved]
  - Orthostatic hypotension [Recovered/Resolved]

NARRATIVE: CASE EVENT DATE: 20211008
